FAERS Safety Report 13888110 (Version 1)
Quarter: 2017Q3

REPORT INFORMATION
  Report Type: Spontaneous
  Country: US (occurrence: US)
  Receive Date: 20170822
  Receipt Date: 20170822
  Transmission Date: 20171127
  Serious: No
  Sender: FDA-Public Use
  Company Number: US-ROCHE-1525068

PATIENT
  Sex: Female

DRUGS (1)
  1. ACTEMRA [Suspect]
     Active Substance: TOCILIZUMAB
     Indication: RHEUMATOID ARTHRITIS
     Dosage: 0.9 ML
     Route: 058

REACTIONS (4)
  - Rash [Recovered/Resolved]
  - Abdominal pain upper [Recovered/Resolved]
  - Peripheral swelling [Recovered/Resolved]
  - Headache [Recovered/Resolved]
